FAERS Safety Report 9147073 (Version 1)
Quarter: 2013Q1

REPORT INFORMATION
  Report Type: Spontaneous
  Country: US (occurrence: US)
  Receive Date: 20130307
  Receipt Date: 20130307
  Transmission Date: 20140127
  Serious: Yes (Other)
  Sender: FDA-Public Use
  Company Number: US-BRISTOL-MYERS SQUIBB COMPANY-17423997

PATIENT
  Age: 40 Year
  Sex: Male

DRUGS (2)
  1. METFORMIN HCL [Suspect]
  2. GLUCOTROL XL [Suspect]

REACTIONS (1)
  - Myocardial infarction [Unknown]
